FAERS Safety Report 20484104 (Version 1)
Quarter: 2022Q1

REPORT INFORMATION
  Report Type: Spontaneous
  Country: US (occurrence: None)
  Receive Date: 20220216
  Receipt Date: 20220216
  Transmission Date: 20220423
  Serious: Yes (Hospitalization)
  Sender: FDA-Public Use
  Company Number: None

PATIENT
  Age: 23 Year
  Sex: Female
  Weight: 51.4 kg

DRUGS (1)
  1. TISAGENLECLEUCEL [Suspect]
     Active Substance: TISAGENLECLEUCEL
     Indication: Acute lymphocytic leukaemia
     Dosage: FREQUENCY : ONCE;?
     Route: 042
     Dates: start: 20211227, end: 20211227

REACTIONS (11)
  - Cytokine release syndrome [None]
  - Haemophagocytic lymphohistiocytosis [None]
  - Graft versus host disease in liver [None]
  - Febrile neutropenia [None]
  - Anal abscess [None]
  - Escherichia bacteraemia [None]
  - Serum ferritin increased [None]
  - Blood triglycerides increased [None]
  - Hypofibrinogenaemia [None]
  - Transaminases increased [None]
  - Hyperbilirubinaemia [None]

NARRATIVE: CASE EVENT DATE: 20211230
